FAERS Safety Report 6571884-6 (Version None)
Quarter: 2010Q1

REPORT INFORMATION
  Report Type: 
  Country: None (occurrence: None)
  Receive Date: 20100205
  Receipt Date: 20100127
  Transmission Date: 20100710
  Serious: Yes (Life-Threatening, Hospitalization)
  Sender: FDA-Public Use
  Company Number: DE-ROCHE-623252

PATIENT
  Age: 77 Year
  Sex: Male
  Weight: 83 kg

DRUGS (11)
  1. TORASEMIDE [Suspect]
     Route: 048
     Dates: start: 20090125
  2. ARCOXIA [Interacting]
     Dosage: FORM: FILM COATED TABLET
     Route: 048
     Dates: start: 20090123, end: 20090130
  3. GABAPENTIN [Interacting]
     Indication: PERIPHERAL ARTERIAL OCCLUSIVE DISEASE
     Route: 048
     Dates: start: 20090103, end: 20090130
  4. BENZBROMARONE [Interacting]
     Indication: GOUT
     Dosage: FORM: COATED TABLET
     Route: 048
     Dates: start: 20090103, end: 20090130
  5. BELOC-ZOK [Interacting]
     Dosage: FORM: SUSTAINED-RELEASE TABLET
     Route: 048
     Dates: start: 19950101, end: 20090130
  6. BENAZEPRIL HYDROCHLORIDE [Interacting]
     Dosage: FORM: FILM COATED TABLET, 1 DOSEFORM(20 MG/25 MG) DAILY
     Route: 048
     Dates: start: 20080501, end: 20090130
  7. DIGITOXIN [Interacting]
     Indication: ATRIAL FIBRILLATION
     Route: 048
     Dates: start: 20070401, end: 20090129
  8. VEROSPIRON [Interacting]
     Route: 048
     Dates: start: 20081201, end: 20090129
  9. XIPAMIDE [Interacting]
     Route: 048
     Dates: start: 20081201, end: 20090129
  10. FALITHROM [Concomitant]
     Indication: ATRIAL FIBRILLATION
     Dosage: FORM: ENTERIC COATED TABLET
     Route: 048
     Dates: start: 19960101, end: 20090130
  11. LOVASTATIN [Concomitant]
     Route: 048
     Dates: start: 20070401, end: 20090129

REACTIONS (1)
  - RENAL FAILURE ACUTE [None]
